FAERS Safety Report 6856908-0 (Version None)
Quarter: 2010Q3

REPORT INFORMATION
  Report Type: 
  Country: None (occurrence: None)
  Receive Date: 20100719
  Receipt Date: 20100712
  Transmission Date: 20110219
  Serious: Yes (Hospitalization)
  Sender: FDA-Public Use
  Company Number: PHHO2010TR08017

PATIENT
  Sex: Male
  Weight: 55 kg

DRUGS (1)
  1. CGP 57148B T35717+ [Suspect]
     Indication: GASTROINTESTINAL STROMAL TUMOUR
     Dosage: UNK
     Dates: start: 20091008, end: 20100608

REACTIONS (4)
  - FISTULA [None]
  - INFLAMMATION [None]
  - PULMONARY FIBROSIS [None]
  - PULMONARY MASS [None]
